FAERS Safety Report 5244617-3 (Version None)
Quarter: 2007Q1

REPORT INFORMATION
  Report Type: 
  Country: None (occurrence: None)
  Receive Date: 20061201
  Receipt Date: 20060801
  Transmission Date: 20070707
  Serious: No
  Sender: FDA-Public Use
  Company Number: 2006PV014451

PATIENT
  Age: 71 Year
  Sex: Male
  Weight: 102.5129 kg

DRUGS (28)
  1. BYETTA [Suspect]
     Indication: DIABETES MELLITUS NON-INSULIN-DEPENDENT
     Dosage: SEE IMAGE
     Route: 058
     Dates: start: 20060401, end: 20060422
  2. BYETTA [Suspect]
     Indication: DIABETES MELLITUS NON-INSULIN-DEPENDENT
     Dosage: SEE IMAGE
     Route: 058
     Dates: start: 20060401, end: 20060430
  3. BYETTA [Suspect]
     Indication: DIABETES MELLITUS NON-INSULIN-DEPENDENT
     Dosage: SEE IMAGE
     Route: 058
     Dates: start: 20060401, end: 20060509
  4. BYETTA [Suspect]
     Indication: DIABETES MELLITUS NON-INSULIN-DEPENDENT
     Dosage: SEE IMAGE
     Route: 058
     Dates: start: 20060423
  5. BYETTA [Suspect]
     Indication: DIABETES MELLITUS NON-INSULIN-DEPENDENT
     Dosage: SEE IMAGE
     Route: 058
     Dates: start: 20060501
  6. BYETTA [Suspect]
  7. METFORMIN (500 MG) [Suspect]
     Indication: DRUG USE FOR UNKNOWN INDICATION
     Dosage: 500 MG;BID;PO
     Route: 048
     Dates: end: 20060725
  8. ZOCOR [Suspect]
     Indication: DRUG USE FOR UNKNOWN INDICATION
     Dosage: PO
     Route: 048
  9. GLUCOTROL XL [Concomitant]
  10. LANTUS [Concomitant]
  11. ALLEGRA [Concomitant]
  12. ARICEPT [Concomitant]
  13. SINGULAIR [Concomitant]
  14. BETAMETHASONE DIPROPIONATE OINTMENT [Concomitant]
  15. COREG [Concomitant]
  16. ZOLOFT [Concomitant]
  17. LYRICA [Concomitant]
  18. OMEPRAZOLE [Concomitant]
  19. CYCLOBENZAPRINE HCL [Concomitant]
  20. AMITRIPTYLINE HCL [Concomitant]
  21. MAGNESIUM [Concomitant]
  22. IRON [Concomitant]
  23. VITAMIN B COMPLEX CAP [Concomitant]
  24. ASCORBIC ACID [Concomitant]
  25. MULTI-VITAMINS [Concomitant]
  26. ASPIRIN [Concomitant]
  27. OMEGA 3 [Concomitant]
  28. MYLANTA [Concomitant]

REACTIONS (3)
  - DIARRHOEA [None]
  - RASH [None]
  - WEIGHT DECREASED [None]
